FAERS Safety Report 7575059-3 (Version None)
Quarter: 2011Q2

REPORT INFORMATION
  Report Type: 
  Country: None (occurrence: None)
  Receive Date: 20110627
  Receipt Date: 20110620
  Transmission Date: 20111010
  Serious: Yes (Hospitalization)
  Sender: FDA-Public Use
  Company Number: IE-B.I. PHARMACEUTICALS,INC./RIDGEFIELD-2011-UK-00524UK

PATIENT
  Sex: Male

DRUGS (7)
  1. SOTALOL HCL [Concomitant]
     Dosage: 160 MG
  2. ALLOPURINOL [Concomitant]
     Dosage: 30 MG
  3. TRAZODONE HCL [Concomitant]
     Dosage: 50 MG
  4. PRADAXA [Suspect]
     Indication: THROMBOSIS PROPHYLAXIS
     Dosage: 220 MG
     Dates: start: 20110512, end: 20110526
  5. DOXAZOSIN MESYLATE [Concomitant]
     Dosage: 4 MG
  6. FUROSEMIDE [Concomitant]
     Dosage: 40 MG
  7. LOSARTAN POTASSIUM AND HYDROCHLOROTHIAZIDE [Concomitant]
     Dosage: STRENGTH=100/25G

REACTIONS (2)
  - ESCHERICHIA SEPSIS [None]
  - LIVER FUNCTION TEST ABNORMAL [None]
